FAERS Safety Report 18030374 (Version 1)
Quarter: 2020Q3

REPORT INFORMATION
  Report Type: Spontaneous
  Country: US (occurrence: US)
  Receive Date: 20200715
  Receipt Date: 20200715
  Transmission Date: 20201103
  Serious: Yes (Other)
  Sender: FDA-Public Use
  Company Number: US-OPTINOSE US, INC-2020OPT000447

PATIENT
  Age: 49 Year
  Sex: Female

DRUGS (2)
  1. XHANCE [Suspect]
     Active Substance: FLUTICASONE PROPIONATE
     Indication: ASTHMA
     Route: 045
  2. XHANCE [Suspect]
     Active Substance: FLUTICASONE PROPIONATE
     Indication: MULTIPLE ALLERGIES

REACTIONS (6)
  - Concussion [Not Recovered/Not Resolved]
  - Hypopituitarism [Unknown]
  - Product use in unapproved indication [Unknown]
  - Adrenal insufficiency [Unknown]
  - Cortisol decreased [Unknown]
  - Hypernatraemia [Unknown]
